FAERS Safety Report 26131599 (Version 1)
Quarter: 2025Q4

REPORT INFORMATION
  Report Type: Spontaneous
  Country: EU (occurrence: EU)
  Receive Date: 20251208
  Receipt Date: 20251208
  Transmission Date: 20260117
  Serious: Yes (Death, Other)
  Sender: JOHNSON AND JOHNSON
  Company Number: EU-JNJFOC-20251206478

PATIENT
  Sex: Female
  Weight: 45 kg

DRUGS (3)
  1. RYBREVANT [Suspect]
     Active Substance: AMIVANTAMAB-VMJW
     Indication: Non-small cell lung cancer metastatic
     Dosage: INFUSIONS OF WEEK 1 (DAY 1 AND DAY 2) AS A SINGLE INFUSION, (1ST INFUSION IN FRACTIONATED DOSE) INFUSION NO. 3,  LAST INFUSION DATE-17-OCT-2025
     Dates: start: 20251002, end: 20251010
  2. CARBOPLATIN [Concomitant]
     Active Substance: CARBOPLATIN
     Indication: Product used for unknown indication
  3. PEMETREXED [Concomitant]
     Active Substance: PEMETREXED
     Indication: Product used for unknown indication
     Dosage: STOP DATE- 19/10/2025

REACTIONS (2)
  - Status epilepticus [Fatal]
  - Non-small cell lung cancer metastatic [Unknown]
